FAERS Safety Report 13780398 (Version 2)
Quarter: 2017Q4

REPORT INFORMATION
  Report Type: Spontaneous
  Country: DE (occurrence: DE)
  Receive Date: 20170724
  Receipt Date: 20171016
  Transmission Date: 20180320
  Serious: Yes (Death, Other)
  Sender: FDA-Public Use
  Company Number: DE-009507513-1707DEU008497

PATIENT
  Sex: Female
  Weight: 2.85 kg

DRUGS (6)
  1. VANCOMYCIN [Concomitant]
     Active Substance: VANCOMYCIN
  2. MEROPENEM. [Concomitant]
     Active Substance: MEROPENEM
  3. ARGIPRESSIN [Concomitant]
     Active Substance: ARGIPRESSIN
  4. LIOTHYRONINE SODIUM. [Concomitant]
     Active Substance: LIOTHYRONINE SODIUM
  5. CANCIDAS [Suspect]
     Active Substance: CASPOFUNGIN ACETATE
     Indication: CANDIDA SEPSIS
     Dosage: 14 MG/24 H CORRESPONDING TO 50 MG/M2
     Dates: start: 20170406, end: 20170408
  6. AMPHOTERICIN B. [Concomitant]
     Active Substance: AMPHOTERICIN B
     Dosage: 3 MG/KG, QD
     Dates: start: 20170406, end: 20170408

REACTIONS (4)
  - Generalised oedema [Fatal]
  - Peritonitis [Fatal]
  - Fungal sepsis [Fatal]
  - Capillary leak syndrome [Fatal]

NARRATIVE: CASE EVENT DATE: 2017
